FAERS Safety Report 25804072 (Version 1)
Quarter: 2025Q3

REPORT INFORMATION
  Report Type: Spontaneous
  Country: AU (occurrence: AU)
  Receive Date: 20250915
  Receipt Date: 20250915
  Transmission Date: 20251021
  Serious: Yes (Hospitalization, Other)
  Sender: SLATE RUN
  Company Number: AU-SLATERUN-2025SRLIT00188

PATIENT
  Age: 81 Year
  Sex: Male

DRUGS (1)
  1. AMIODARONE HYDROCHLORIDE [Suspect]
     Active Substance: AMIODARONE HYDROCHLORIDE
     Indication: Atrial fibrillation
     Route: 065

REACTIONS (3)
  - Cardiac failure [Unknown]
  - Cardiogenic shock [Unknown]
  - Hypothyroidism [Recovering/Resolving]
